FAERS Safety Report 14716870 (Version 6)
Quarter: 2020Q1

REPORT INFORMATION
  Report Type: Report from Study
  Country: KR (occurrence: KR)
  Receive Date: 20180404
  Receipt Date: 20200309
  Transmission Date: 20200409
  Serious: Yes (Death, Life-Threatening, Hospitalization)
  Sender: FDA-Public Use
  Company Number: KR-JNJFOC-20180317122

PATIENT
  Age: 76 Year
  Sex: Male
  Weight: 61.5 kg

DRUGS (29)
  1. ACICLOVIR [Concomitant]
     Active Substance: ACYCLOVIR
     Route: 065
     Dates: start: 20170302, end: 20180330
  2. ZOLENIC [Concomitant]
     Route: 042
     Dates: start: 20171206
  3. DARATUMUMAB [Suspect]
     Active Substance: DARATUMUMAB
     Indication: PLASMA CELL MYELOMA
     Route: 042
     Dates: start: 20171206, end: 20180227
  4. DARATUMUMAB [Suspect]
     Active Substance: DARATUMUMAB
     Route: 042
     Dates: start: 20180322
  5. SODIUM BICARBONATE. [Concomitant]
     Active Substance: SODIUM BICARBONATE
     Dosage: 40-80 MEQ AND 10 G
     Route: 065
     Dates: start: 20171206, end: 20180331
  6. SINGULAIR [Concomitant]
     Active Substance: MONTELUKAST SODIUM
     Route: 048
  7. PANORIN [Concomitant]
     Route: 042
     Dates: start: 20180103
  8. ERDOS [Concomitant]
     Active Substance: ERDOSTEINE
     Route: 065
  9. SODIUM BICARBONATE. [Concomitant]
     Active Substance: SODIUM BICARBONATE
     Indication: PLASMA CELL MYELOMA
     Route: 065
     Dates: start: 20171206, end: 20171207
  10. NORMAL SALINE [Concomitant]
     Active Substance: SODIUM CHLORIDE
     Route: 042
  11. DEXAMETHASONE. [Concomitant]
     Active Substance: DEXAMETHASONE
     Indication: PLASMA CELL MYELOMA
     Dosage: 8-20 MG
     Route: 065
     Dates: start: 20171206, end: 20180328
  12. LASIX [Concomitant]
     Active Substance: FUROSEMIDE
     Dosage: 10-20 MG
     Route: 065
     Dates: start: 20170117, end: 20180307
  13. VARIDASE [Concomitant]
     Route: 065
     Dates: start: 20180124, end: 20180130
  14. NEXIUM [Concomitant]
     Active Substance: ESOMEPRAZOLE MAGNESIUM
     Dosage: 30-40 MG
     Route: 048
     Dates: start: 20171206, end: 20180331
  15. BEAROBAN [Concomitant]
     Dosage: 1 UNK
     Route: 065
     Dates: start: 20171213, end: 20171225
  16. MEGACE F [Concomitant]
     Route: 065
     Dates: start: 20180227, end: 20180327
  17. PENIRAMIN [Concomitant]
     Route: 042
  18. TYLENOL ER [Concomitant]
     Active Substance: ACETAMINOPHEN
     Route: 048
  19. ACETAMINOPHEN. [Concomitant]
     Active Substance: ACETAMINOPHEN
     Route: 048
     Dates: start: 20171207
  20. CARFILZOMIB [Suspect]
     Active Substance: CARFILZOMIB
     Indication: PLASMA CELL MYELOMA
     Dosage: PER CHEMO REGIM
     Route: 042
     Dates: start: 20171206, end: 20180228
  21. CARFILZOMIB [Suspect]
     Active Substance: CARFILZOMIB
     Route: 042
     Dates: start: 20180322
  22. CARFILZOMIB [Suspect]
     Active Substance: CARFILZOMIB
     Dosage: CYCLE5 DAY2
     Route: 042
     Dates: start: 20180329
  23. SULTAMICILLIN TOSYLATE [Concomitant]
     Active Substance: SULTAMICILLIN TOSYLATE
     Route: 065
  24. TARGIN [Concomitant]
     Active Substance: NALOXONE HYDROCHLORIDE\OXYCODONE HYDROCHLORIDE
     Route: 065
     Dates: start: 20170620, end: 20180330
  25. METHYLON [Concomitant]
     Active Substance: METHYLPREDNISOLONE
     Route: 048
  26. TERRAMYCIN [Concomitant]
     Active Substance: OXYTETRACYCLINE\OXYTETRACYCLINE HYDROCHLORIDE
     Dosage: 1 UNK
     Route: 065
     Dates: start: 20171206, end: 20171214
  27. NEURONTIN [Concomitant]
     Active Substance: GABAPENTIN
     Route: 065
     Dates: start: 20170322, end: 20180330
  28. FENTORA [Concomitant]
     Active Substance: FENTANYL CITRATE
     Route: 065
  29. UNASYN [Concomitant]
     Active Substance: AMPICILLIN SODIUM\SULBACTAM SODIUM
     Route: 065

REACTIONS (2)
  - Septic shock [Fatal]
  - Pneumocystis jirovecii pneumonia [Not Recovered/Not Resolved]

NARRATIVE: CASE EVENT DATE: 20180307
